FAERS Safety Report 8580778-6 (Version None)
Quarter: 2012Q3

REPORT INFORMATION
  Report Type: 
  Country: None (occurrence: None)
  Receive Date: 20120809
  Receipt Date: 20120731
  Transmission Date: 20120928
  Serious: No
  Sender: FDA-Public Use
  Company Number: US-BIOGENIDEC-2012BI028548

PATIENT
  Age: 43 Year
  Sex: Female

DRUGS (6)
  1. AVONEX [Suspect]
     Route: 030
     Dates: start: 20120714
  2. AVONEX [Suspect]
     Route: 030
     Dates: start: 20120721
  3. SONATA [Concomitant]
     Indication: INSOMNIA
     Dates: start: 20111201
  4. TRAZODONE HYDROCHLORIDE [Concomitant]
     Indication: INSOMNIA
     Dates: start: 20111201
  5. AVONEX [Suspect]
     Route: 030
     Dates: start: 20120728
  6. AVONEX [Suspect]
     Indication: MULTIPLE SCLEROSIS
     Route: 030
     Dates: start: 20120708

REACTIONS (6)
  - PARAESTHESIA [None]
  - RASH [None]
  - BURNING SENSATION [None]
  - RASH PRURITIC [None]
  - BLISTER [None]
  - INFLUENZA LIKE ILLNESS [None]
